FAERS Safety Report 7853982-X (Version None)
Quarter: 2011Q4

REPORT INFORMATION
  Report Type: 
  Country: None (occurrence: None)
  Receive Date: 20111026
  Receipt Date: 20111024
  Transmission Date: 20120403
  Serious: No
  Sender: FDA-Public Use
  Company Number: US-PFIZER INC-2011257603

PATIENT
  Sex: Female
  Weight: 95.238 kg

DRUGS (7)
  1. ADVIL CONGESTION RELIEF [Suspect]
     Indication: HEADACHE
  2. ADVIL ALLERGY SINUS [Suspect]
     Indication: HEADACHE
  3. PRAVASTATIN [Concomitant]
     Indication: BLOOD CHOLESTEROL INCREASED
     Dosage: 40 MG, DAILY
  4. ADVIL CONGESTION RELIEF [Suspect]
     Indication: SINUS CONGESTION
     Dosage: 10 MG, 4X/DAY
     Dates: start: 20111019, end: 20111021
  5. ADVIL CONGESTION RELIEF [Suspect]
     Indication: SINUS HEADACHE
  6. ADVIL ALLERGY SINUS [Suspect]
     Indication: SINUS CONGESTION
     Dosage: UNK, EVERY FIVE HRS
     Dates: start: 20111023
  7. ADVIL ALLERGY SINUS [Suspect]
     Indication: SINUS HEADACHE

REACTIONS (3)
  - NAUSEA [None]
  - INSOMNIA [None]
  - DRUG INEFFECTIVE [None]
